FAERS Safety Report 8069826-X (Version None)
Quarter: 2012Q1

REPORT INFORMATION
  Report Type: 
  Country: None (occurrence: None)
  Receive Date: 20120125
  Receipt Date: 20120125
  Transmission Date: 20120608
  Serious: Yes (Death, Life-Threatening)
  Sender: FDA-Public Use
  Company Number: None

PATIENT
  Age: 56 Year
  Sex: Male
  Weight: 90.718 kg

DRUGS (1)
  1. FOSAMAX [Suspect]
     Indication: OSTEOPOROSIS
     Dosage: 70 MG TAB
     Dates: start: 20040415, end: 20080531

REACTIONS (5)
  - OESOPHAGEAL IRRITATION [None]
  - GALLBLADDER OPERATION [None]
  - DYSPEPSIA [None]
  - CALCINOSIS [None]
  - GALLBLADDER DISORDER [None]
